FAERS Safety Report 6024747-9 (Version None)
Quarter: 2008Q4

REPORT INFORMATION
  Report Type: 
  Country: None (occurrence: None)
  Receive Date: 20081231
  Receipt Date: 20081223
  Transmission Date: 20090506
  Serious: Yes (Hospitalization, Other)
  Sender: FDA-Public Use
  Company Number: US-BIOGENIDEC-2008BI006001

PATIENT
  Sex: Female

DRUGS (4)
  1. AVONEX [Suspect]
     Indication: MULTIPLE SCLEROSIS
     Route: 030
     Dates: start: 20000802
  2. AVONEX [Suspect]
     Route: 030
     Dates: start: 20031210, end: 20071101
  3. BACLOFEN [Concomitant]
     Indication: DRUG USE FOR UNKNOWN INDICATION
     Route: 048
  4. NOVANTRONE [Concomitant]
     Indication: DRUG USE FOR UNKNOWN INDICATION

REACTIONS (10)
  - ANAEMIA [None]
  - COAGULOPATHY [None]
  - DECUBITUS ULCER [None]
  - ESCHERICHIA INFECTION [None]
  - MOBILITY DECREASED [None]
  - PERITONITIS [None]
  - SEPSIS [None]
  - URINARY BLADDER RUPTURE [None]
  - URINARY TRACT INFECTION [None]
  - VENOUS THROMBOSIS [None]
